FAERS Safety Report 4802654-4 (Version None)
Quarter: 2005Q4

REPORT INFORMATION
  Report Type: 
  Country: None (occurrence: None)
  Receive Date: 20051014
  Receipt Date: 20050624
  Transmission Date: 20060501
  Serious: Yes (Other)
  Sender: FDA-Public Use
  Company Number: 2005092161

PATIENT
  Sex: Female

DRUGS (14)
  1. GABAPENTIN [Suspect]
     Indication: ILL-DEFINED DISORDER
     Dosage: 300 MG, ORAL
     Route: 048
     Dates: start: 20020901
  2. AVANDIA [Suspect]
     Indication: DIABETES MELLITUS NON-INSULIN-DEPENDENT
     Dosage: 4 MG, ORAL
     Route: 048
     Dates: start: 20010401
  3. GLUCAGON [Concomitant]
  4. IRON [Concomitant]
  5. LASIX [Concomitant]
  6. PROTONIX [Concomitant]
  7. PERCOCET [Concomitant]
  8. NOVOLOG [Concomitant]
  9. HUMULIN R [Concomitant]
  10. LIPITOR [Concomitant]
  11. ROCALTROL [Concomitant]
  12. ALPRAZOLAM [Concomitant]
  13. OSCAL (CALCIUM CARBONATE) [Concomitant]
  14. ARANESP [Concomitant]

REACTIONS (1)
  - BLINDNESS [None]
